FAERS Safety Report 16151435 (Version 1)
Quarter: 2019Q2

REPORT INFORMATION
  Report Type: Spontaneous
  Country: US (occurrence: US)
  Receive Date: 20190228
  Receipt Date: 20190228
  Transmission Date: 20190711
  Serious: Yes (Hospitalization, Other)
  Sender: FDA-Public Use
  Company Number: None

PATIENT
  Age: 65 Year
  Sex: Male

DRUGS (1)
  1. ENBREL [Suspect]
     Active Substance: ETANERCEPT
     Route: 058
     Dates: start: 201605

REACTIONS (4)
  - Pneumothorax [None]
  - Procedural complication [None]
  - Lung adenocarcinoma stage I [None]
  - Product dose omission [None]

NARRATIVE: CASE EVENT DATE: 20190228
